FAERS Safety Report 9364449 (Version 1)
Quarter: 2013Q2

REPORT INFORMATION
  Report Type: Spontaneous
  Country: IT (occurrence: IT)
  Receive Date: 20130624
  Receipt Date: 20130624
  Transmission Date: 20140414
  Serious: Yes (Life-Threatening)
  Sender: FDA-Public Use
  Company Number: IT-TEVA-413238ISR

PATIENT
  Age: 83 Year
  Sex: Female

DRUGS (6)
  1. CLARITROMICINA TEVA [Suspect]
     Dosage: 250 MILLIGRAM DAILY;
     Route: 048
     Dates: start: 20130508, end: 20130513
  2. RYTMOBETA [Suspect]
     Dosage: 160 MILLIGRAM DAILY;
     Route: 048
  3. ACEQUIN 20MG [Concomitant]
     Dosage: 40 MILLIGRAM DAILY;
     Route: 048
  4. PANTORC [Concomitant]
     Dosage: 20 MILLIGRAM DAILY;
  5. FLAGYL 250MG [Concomitant]
  6. CLEXANE [Concomitant]

REACTIONS (3)
  - Cardiac arrest [Recovered/Resolved with Sequelae]
  - Electrocardiogram QT prolonged [Recovered/Resolved with Sequelae]
  - Ventricular fibrillation [Recovered/Resolved with Sequelae]
